FAERS Safety Report 6259124-9 (Version None)
Quarter: 2009Q3

REPORT INFORMATION
  Report Type: 
  Country: None (occurrence: None)
  Receive Date: 20090707
  Receipt Date: 20070424
  Transmission Date: 20100115
  Serious: Yes (Hospitalization, Other)
  Sender: FDA-Public Use
  Company Number: US-CELGENEUS-163-21880-07021297

PATIENT
  Sex: Male
  Weight: 102.15 kg

DRUGS (4)
  1. REVLIMID [Suspect]
     Route: 048
     Dates: start: 20061212, end: 20070331
  2. ARANESP [Concomitant]
     Indication: DRUG USE FOR UNKNOWN INDICATION
     Route: 065
     Dates: start: 20051104
  3. VIDAZA [Concomitant]
     Indication: MYELODYSPLASTIC SYNDROME
     Route: 065
     Dates: start: 20070319
  4. INSULIN [Concomitant]
     Indication: DIABETES MELLITUS
     Route: 065

REACTIONS (4)
  - ANAEMIA [None]
  - ASTHMA [None]
  - RASH MACULO-PAPULAR [None]
  - RESPIRATORY DISTRESS [None]
